FAERS Safety Report 8759626 (Version 1)
Quarter: 2012Q4

REPORT INFORMATION
  Report Type: 
  Country: US (occurrence: US)
  Receive Date: 20120829
  Receipt Date: 20120829
  Transmission Date: 20130627
  Serious: No
  Sender: FDA-Public Use
  Company Number: US-GLAXOSMITHKLINE-A0956689A

PATIENT
  Age: 66 Year
  Sex: Male
  Weight: 82.3 kg

DRUGS (2)
  1. MALARONE [Suspect]
     Indication: MALARIA PROPHYLAXIS
     Dosage: 1TAB Per day
     Route: 048
     Dates: start: 20111115
  2. NO CONCURRENT MEDICATION [Concomitant]

REACTIONS (1)
  - Dizziness [Recovered/Resolved]
